FAERS Safety Report 7200410-3 (Version None)
Quarter: 2010Q4

REPORT INFORMATION
  Report Type: 
  Country: None (occurrence: None)
  Receive Date: 20101214
  Receipt Date: 20101206
  Transmission Date: 20110411
  Serious: Yes (Hospitalization)
  Sender: FDA-Public Use
  Company Number: CIP10003020

PATIENT
  Sex: Female

DRUGS (3)
  1. ACTONEL [Suspect]
     Indication: BONE DISORDER
     Dosage: 150 MG ONCE MONTHLY, ORAL
     Route: 048
     Dates: end: 20100930
  2. ACTONEL [Suspect]
     Indication: BONE DISORDER
     Dosage: 150 MG ONCE MONTHLY, ORAL
     Route: 048
     Dates: start: 20101130
  3. ALL OTHER THERAPEUTIC PRODUCTS () [Suspect]

REACTIONS (4)
  - DIVERTICULITIS [None]
  - DRUG DOSE OMISSION [None]
  - DRUG INTERACTION [None]
  - GASTRIC DISORDER [None]
